FAERS Safety Report 4382608-5 (Version None)
Quarter: 2004Q2

REPORT INFORMATION
  Report Type: 
  Country: None (occurrence: None)
  Receive Date: 20040617
  Receipt Date: 20040603
  Transmission Date: 20050107
  Serious: Yes (Other)
  Sender: FDA-Public Use
  Company Number: B0334551A

PATIENT
  Age: 72 Year
  Sex: Female

DRUGS (2)
  1. FORTAZ [Suspect]
     Indication: PERITONITIS
  2. VANCOMYCIN [Suspect]
     Indication: PERITONITIS

REACTIONS (9)
  - ANXIETY [None]
  - APHASIA [None]
  - BLOOD CREATININE INCREASED [None]
  - BLOOD UREA INCREASED [None]
  - CONFUSIONAL STATE [None]
  - EXTRAPYRAMIDAL DISORDER [None]
  - MOOD ALTERED [None]
  - MYOCLONUS [None]
  - STATUS EPILEPTICUS [None]
